FAERS Safety Report 4753649-0 (Version None)
Quarter: 2005Q3

REPORT INFORMATION
  Report Type: 
  Country: None (occurrence: None)
  Receive Date: 20050824
  Receipt Date: 20050811
  Transmission Date: 20060218
  Serious: Yes (Hospitalization, Disabling)
  Sender: FDA-Public Use
  Company Number: 2005058752

PATIENT
  Age: 53 Year
  Sex: Male

DRUGS (3)
  1. BEXTRA [Suspect]
     Indication: BURSITIS
     Dosage: 80 MG (40 MG, 2 IN 1 D), ORAL
     Route: 048
     Dates: start: 20040402, end: 20040402
  2. BEXTRA [Suspect]
     Indication: PAIN IN EXTREMITY
     Dosage: 80 MG (40 MG, 2 IN 1 D), ORAL
     Route: 048
     Dates: start: 20040402, end: 20040402
  3. AMLODIPINE [Concomitant]

REACTIONS (8)
  - AMNESIA [None]
  - CEREBROVASCULAR ACCIDENT [None]
  - COORDINATION ABNORMAL [None]
  - DYSGRAPHIA [None]
  - EMOTIONAL DISTRESS [None]
  - FACIAL PALSY [None]
  - IMPAIRED WORK ABILITY [None]
  - SPEECH DISORDER [None]
